FAERS Safety Report 21668090 (Version 3)
Quarter: 2023Q1

REPORT INFORMATION
  Report Type: Spontaneous
  Country: US (occurrence: US)
  Receive Date: 20221201
  Receipt Date: 20230127
  Transmission Date: 20230418
  Serious: Yes (Other)
  Sender: FDA-Public Use
  Company Number: US-PFIZER INC-PV202200114962

PATIENT
  Age: 48 Year
  Sex: Female
  Weight: 68.027 kg

DRUGS (5)
  1. METHOTREXATE SODIUM [Suspect]
     Active Substance: METHOTREXATE SODIUM
     Indication: Ankylosing spondylitis
     Dosage: 20 MG, WEEKLY (4 TABLETS TWICE DAILY ONE DAY A WEEK)
     Route: 048
  2. METHOTREXATE SODIUM [Suspect]
     Active Substance: METHOTREXATE SODIUM
     Indication: Synovitis
  3. ZOFRAN [Concomitant]
     Active Substance: ONDANSETRON HYDROCHLORIDE
     Dosage: UNK
  4. FOLIC ACID [Concomitant]
     Active Substance: FOLIC ACID
     Dosage: 3 MG, 1X/DAY (3 TABLET ORALLY ONCE A DAY)
  5. MELOXICAM [Concomitant]
     Active Substance: MELOXICAM
     Dosage: 15 MG, 1X/DAY
     Route: 048

REACTIONS (32)
  - Sjogren^s syndrome [Unknown]
  - Optic neuritis [Unknown]
  - Drug ineffective [Unknown]
  - Musculoskeletal stiffness [Not Recovered/Not Resolved]
  - Synovitis [Unknown]
  - Vitamin D decreased [Unknown]
  - Arthralgia [Unknown]
  - Myalgia [Unknown]
  - Nasal ulcer [Unknown]
  - Sacroiliitis [Unknown]
  - Pain in extremity [Not Recovered/Not Resolved]
  - Productive cough [Unknown]
  - Nausea [Recovered/Resolved]
  - Nervousness [Unknown]
  - Alopecia [Recovered/Resolved]
  - Arthritis [Unknown]
  - Tendonitis [Unknown]
  - Gait disturbance [Unknown]
  - Enthesopathy [Not Recovered/Not Resolved]
  - Photosensitivity reaction [Unknown]
  - Livedo reticularis [Unknown]
  - Dry mouth [Unknown]
  - Dry eye [Unknown]
  - Night sweats [Unknown]
  - Mouth ulceration [Unknown]
  - Costochondritis [Unknown]
  - Telangiectasia [Unknown]
  - Back pain [Recovering/Resolving]
  - Systemic lupus erythematosus rash [Unknown]
  - Fatigue [Unknown]
  - Skin disorder [Unknown]
  - Rash [Unknown]

NARRATIVE: CASE EVENT DATE: 20220620
